FAERS Safety Report 20960667 (Version 3)
Quarter: 2022Q3

REPORT INFORMATION
  Report Type: Report from Study
  Country: US (occurrence: US)
  Receive Date: 20220615
  Receipt Date: 20220805
  Transmission Date: 20221027
  Serious: Yes (Hospitalization)
  Sender: FDA-Public Use
  Company Number: US-JNJFOC-20220512185

PATIENT
  Age: 76 Year
  Sex: Female
  Weight: 72.7 kg

DRUGS (7)
  1. EPOPROSTENOL SODIUM [Suspect]
     Active Substance: EPOPROSTENOL SODIUM
     Indication: Pulmonary arterial hypertension
     Dosage: SHE STARTED UPTRAVI ON 7/28/22 AT 400MCG TWICE DAILY, THE SAME DAY SHE DECREASED HER VELETRI DOWN TO
     Route: 042
  2. EPOPROSTENOL SODIUM [Suspect]
     Active Substance: EPOPROSTENOL SODIUM
     Dosage: SHE STARTED?UPTRAVI ON 7/28/22 AT 400MCG TWICE DAILY, THE SAME DAY SHE DECREASED HER VELETRI DOWN TO
     Route: 042
  3. SELEXIPAG [Suspect]
     Active Substance: SELEXIPAG
     Indication: Pulmonary arterial hypertension
     Route: 048
  4. SELEXIPAG [Suspect]
     Active Substance: SELEXIPAG
     Dosage: SHE STARTED UPTRAVI ON 7/28/22 AT 400MCG TWICE DAILY, THE SAME DAY SHE DECREASED HER VELETRI DOWN TO
     Route: 048
     Dates: start: 20220728
  5. SELEXIPAG [Suspect]
     Active Substance: SELEXIPAG
     Route: 048
  6. OPSUMIT [Concomitant]
     Active Substance: MACITENTAN
  7. TADALAFIL [Concomitant]
     Active Substance: TADALAFIL

REACTIONS (9)
  - Device occlusion [Unknown]
  - Drug delivery system malfunction [Not Recovered/Not Resolved]
  - Product administration interrupted [Unknown]
  - Nausea [Unknown]
  - Vomiting [Unknown]
  - Headache [Unknown]
  - Dyspnoea [Unknown]
  - Heart rate increased [Unknown]
  - Oxygen saturation decreased [Unknown]
